FAERS Safety Report 24632075 (Version 1)
Quarter: 2024Q4

REPORT INFORMATION
  Report Type: Spontaneous
  Country: US (occurrence: US)
  Receive Date: 20241118
  Receipt Date: 20241118
  Transmission Date: 20250114
  Serious: No
  Sender: PFIZER
  Company Number: US-PFIZER INC-PV202400147916

PATIENT
  Age: 34 Year
  Sex: Female

DRUGS (2)
  1. LITFULO [Suspect]
     Active Substance: RITLECITINIB TOSYLATE
     Dosage: UNK
  2. MINOXIDIL [Suspect]
     Active Substance: MINOXIDIL
     Dosage: UNK

REACTIONS (3)
  - Pruritus [Unknown]
  - Hypertrichosis [Unknown]
  - Hair growth abnormal [Unknown]
